FAERS Safety Report 8345452-X (Version None)
Quarter: 2012Q2

REPORT INFORMATION
  Report Type: 
  Country: None (occurrence: None)
  Receive Date: 20120508
  Receipt Date: 20120423
  Transmission Date: 20120825
  Serious: Yes (Other)
  Sender: FDA-Public Use
  Company Number: CH-BAXTER-2012BAX003235

PATIENT
  Sex: Female

DRUGS (2)
  1. TISSEEL VH [Suspect]
     Dates: start: 20120417, end: 20120417
  2. TISSEEL VH [Suspect]

REACTIONS (2)
  - INTRAOCULAR PRESSURE INCREASED [None]
  - INCORRECT DOSE ADMINISTERED BY DEVICE [None]
